FAERS Safety Report 4860609-8 (Version None)
Quarter: 2005Q4

REPORT INFORMATION
  Report Type: 
  Country: None (occurrence: None)
  Receive Date: 20051219
  Receipt Date: 20051209
  Transmission Date: 20060501
  Serious: Yes (Hospitalization)
  Sender: FDA-Public Use
  Company Number: DE-MERCK-0512DEU00054

PATIENT
  Sex: Female

DRUGS (2)
  1. SINGULAIR [Suspect]
     Route: 048
     Dates: end: 20030101
  2. SINGULAIR [Suspect]
     Route: 048
     Dates: start: 20030101

REACTIONS (1)
  - ASTHMA [None]
